FAERS Safety Report 4332251-9 (Version None)
Quarter: 2004Q1

REPORT INFORMATION
  Report Type: 
  Country: None (occurrence: None)
  Receive Date: 20040331
  Receipt Date: 20040318
  Transmission Date: 20041129
  Serious: Yes (Death, Hospitalization)
  Sender: FDA-Public Use
  Company Number: 2004204276AR

PATIENT
  Age: 11 Year
  Sex: Female
  Weight: 11 kg

DRUGS (1)
  1. GENOTROPIN [Suspect]
     Indication: BODY HEIGHT BELOW NORMAL
     Dosage: 1IU/KG WEEKLY, SUBCUTANEOUS
     Route: 058
     Dates: start: 20031101, end: 20040218

REACTIONS (2)
  - ACUTE PULMONARY OEDEMA [None]
  - RENAL FAILURE ACUTE [None]
